FAERS Safety Report 24324648 (Version 2)
Quarter: 2024Q3

REPORT INFORMATION
  Report Type: Spontaneous
  Country: NL (occurrence: NL)
  Receive Date: 20240916
  Receipt Date: 20240918
  Transmission Date: 20241017
  Serious: No
  Sender: SANDOZ
  Company Number: NL-SANDOZ-SDZ2024NL080134

PATIENT
  Sex: Female

DRUGS (1)
  1. OMNITROPE [Suspect]
     Active Substance: SOMATROPIN
     Indication: Product used for unknown indication
     Dosage: UNK
     Route: 065

REACTIONS (2)
  - Drug administered in wrong device [Unknown]
  - Device defective [Unknown]
